FAERS Safety Report 13785770 (Version 1)
Quarter: 2017Q3

REPORT INFORMATION
  Report Type: Spontaneous
  Country: US (occurrence: US)
  Receive Date: 20170725
  Receipt Date: 20170725
  Transmission Date: 20171127
  Serious: No
  Sender: FDA-Public Use
  Company Number: US-LUNDBECK-DKLU2033404

PATIENT
  Age: 7 Month
  Sex: Male

DRUGS (1)
  1. SABRIL [Suspect]
     Active Substance: VIGABATRIN
     Indication: INFANTILE SPASMS
     Route: 048

REACTIONS (3)
  - Agitation [Unknown]
  - Tremor [Unknown]
  - Insomnia [Unknown]

NARRATIVE: CASE EVENT DATE: 201706
